FAERS Safety Report 9935313 (Version 1)
Quarter: 2014Q1

REPORT INFORMATION
  Report Type: Spontaneous
  Country: DE (occurrence: DE)
  Receive Date: 20140228
  Receipt Date: 20140228
  Transmission Date: 20141002
  Serious: Yes (Other)
  Sender: FDA-Public Use
  Company Number: DE-PFIZER INC-2014055132

PATIENT
  Sex: Male
  Weight: 2.49 kg

DRUGS (3)
  1. SERTRALINE HCL [Suspect]
     Indication: DEPRESSION
     Dosage: 25 MG, UNK
     Route: 064
  2. SERTRALINE HCL [Suspect]
     Dosage: INCREASED OVER 4 WEEKS TO 150 MG, DAILY
     Route: 064
  3. SERTRALINE HCL [Suspect]
     Dosage: UNK
     Route: 063

REACTIONS (5)
  - Maternal exposure during pregnancy [Unknown]
  - Exposure during breast feeding [Unknown]
  - Premature baby [Unknown]
  - Serotonin syndrome [Recovering/Resolving]
  - Drug withdrawal syndrome neonatal [Recovering/Resolving]
